FAERS Safety Report 10872227 (Version 1)
Quarter: 2015Q1

REPORT INFORMATION
  Report Type: Spontaneous
  Country: JP (occurrence: JP)
  Receive Date: 20150226
  Receipt Date: 20150226
  Transmission Date: 20150721
  Serious: Yes (Other)
  Sender: FDA-Public Use
  Company Number: JP-ABBVIE-15P-087-1346659-00

PATIENT
  Age: 6 Year
  Sex: Male
  Weight: 17 kg

DRUGS (13)
  1. SODIUM VALPROATE [Interacting]
     Active Substance: VALPROATE SODIUM
     Route: 065
     Dates: start: 20121227
  2. SODIUM VALPROATE [Interacting]
     Active Substance: VALPROATE SODIUM
     Route: 065
     Dates: start: 20131009
  3. CEFDITOREN PIVOXIL. [Concomitant]
     Active Substance: CEFDITOREN PIVOXIL
     Indication: TYMPANIC MEMBRANE DISORDER
     Route: 065
     Dates: start: 201212
  4. CEFDITOREN PIVOXIL. [Concomitant]
     Active Substance: CEFDITOREN PIVOXIL
     Indication: RHINORRHOEA
  5. SODIUM VALPROATE [Suspect]
     Active Substance: VALPROATE SODIUM
     Indication: EPILEPSY
     Route: 065
     Dates: start: 20120201
  6. SODIUM VALPROATE [Interacting]
     Active Substance: VALPROATE SODIUM
     Route: 065
     Dates: start: 20130130
  7. SODIUM VALPROATE [Interacting]
     Active Substance: VALPROATE SODIUM
     Route: 065
     Dates: start: 20120314
  8. BECLOMETASONE DIPROPIONATE [Concomitant]
     Active Substance: BECLOMETHASONE DIPROPIONATE
     Indication: RHINORRHOEA
  9. MONTELUKAST [Concomitant]
     Active Substance: MONTELUKAST SODIUM
     Indication: PRODUCT USED FOR UNKNOWN INDICATION
     Route: 065
     Dates: start: 201212
  10. TEBIPENEM PIVOXIL [Interacting]
     Active Substance: TEBIPENEM PIVOXIL
     Indication: TYMPANIC MEMBRANE DISORDER
     Route: 048
     Dates: start: 20121226
  11. MEQUITAZINE [Concomitant]
     Active Substance: MEQUITAZINE
     Indication: PRODUCT USED FOR UNKNOWN INDICATION
     Route: 065
     Dates: start: 201212
  12. CARBOCISTEIN [Concomitant]
     Indication: PRODUCT USED FOR UNKNOWN INDICATION
     Route: 065
     Dates: start: 201212
  13. BECLOMETASONE DIPROPIONATE [Concomitant]
     Active Substance: BECLOMETHASONE DIPROPIONATE
     Indication: TYMPANIC MEMBRANE DISORDER
     Dosage: 2 SPRAYS
     Route: 065
     Dates: start: 201212

REACTIONS (6)
  - Nausea [Unknown]
  - Rhinorrhoea [Unknown]
  - Drug level decreased [Recovered/Resolved]
  - Myringitis [Unknown]
  - Drug interaction [Recovered/Resolved]
  - Seizure [Recovered/Resolved]

NARRATIVE: CASE EVENT DATE: 20121227
